FAERS Safety Report 12441447 (Version 6)
Quarter: 2017Q2

REPORT INFORMATION
  Report Type: Spontaneous
  Country: US (occurrence: US)
  Receive Date: 20160607
  Receipt Date: 20170613
  Transmission Date: 20170830
  Serious: No
  Sender: FDA-Public Use
  Company Number: US-PFIZER INC-2016262698

PATIENT
  Age: 10 Year
  Sex: Female
  Weight: 36 kg

DRUGS (4)
  1. GENOTROPIN [Suspect]
     Active Substance: SOMATROPIN
     Dosage: ALTERNATE 1.6MG AND 1.8MG, DAILY
     Route: 058
  2. GENOTROPIN [Suspect]
     Active Substance: SOMATROPIN
     Indication: TURNER^S SYNDROME
     Dosage: 14 MG, 1X/DAY
     Dates: start: 201309
  3. GENOTROPIN [Suspect]
     Active Substance: SOMATROPIN
     Dosage: 1.5 MG, 1X/DAY (QD)
     Route: 058
     Dates: start: 201406
  4. GENOTROPIN [Suspect]
     Active Substance: SOMATROPIN
     Dosage: UNK
     Route: 058
     Dates: start: 201311

REACTIONS (7)
  - Viral upper respiratory tract infection [Unknown]
  - Injection site bruising [Unknown]
  - Headache [Unknown]
  - Wrong technique in product usage process [Not Recovered/Not Resolved]
  - Discomfort [Unknown]
  - Incorrect dose administered [Unknown]
  - Drug dose omission [Not Recovered/Not Resolved]

NARRATIVE: CASE EVENT DATE: 201309
